FAERS Safety Report 10490205 (Version 2)
Quarter: 2014Q4

REPORT INFORMATION
  Report Type: Other
  Country: GB (occurrence: GB)
  Receive Date: 20141002
  Receipt Date: 20141028
  Transmission Date: 20150528
  Serious: Yes (Other)
  Sender: FDA-Public Use
  Company Number: GB-MYLANLABS-2014M1005382

PATIENT

DRUGS (5)
  1. CITALOPRAM [Suspect]
     Active Substance: CITALOPRAM HYDROBROMIDE
     Dosage: 20 MG, DAILY
     Route: 048
  2. CLOZARIL [Suspect]
     Active Substance: CLOZAPINE
     Indication: SCHIZOPHRENIA
     Dosage: UNK
     Route: 048
     Dates: start: 20140616
  3. MINOCYCLINE [Suspect]
     Active Substance: MINOCYCLINE\MINOCYCLINE HYDROCHLORIDE
     Indication: PRODUCT USED FOR UNKNOWN INDICATION
     Dosage: UNK
     Route: 065
  4. CLOZARIL [Suspect]
     Active Substance: CLOZAPINE
     Dosage: 50 MG, UNK
     Route: 048
  5. CITALOPRAM [Suspect]
     Active Substance: CITALOPRAM HYDROBROMIDE
     Dosage: UNK
     Route: 048

REACTIONS (5)
  - Panic attack [Recovering/Resolving]
  - Drug interaction [Unknown]
  - Circulatory collapse [Recovering/Resolving]
  - Anxiety [Recovering/Resolving]
  - Tachycardia [Unknown]

NARRATIVE: CASE EVENT DATE: 20140804
